FAERS Safety Report 7048868 (Version 8)
Quarter: 2012Q4

REPORT INFORMATION
  Report Type: 
  Country: CA (occurrence: CA)
  Receive Date: 20090713
  Receipt Date: 20121109
  Transmission Date: 20130627
  Serious: Yes (Other)
  Sender: FDA-Public Use
  Company Number: PHHY2009CA27370

PATIENT
  Sex: Male

DRUGS (1)
  1. SANDOSTATIN LAR [Suspect]
     Indication: METASTATIC CARCINOID TUMOUR
     Dosage: 60 mg, every 4 weeks
     Route: 030
     Dates: start: 20060926

REACTIONS (8)
  - Food poisoning [Unknown]
  - Pyrexia [Unknown]
  - Liver disorder [Recovering/Resolving]
  - Inflammation [Recovering/Resolving]
  - Cholelithiasis [Unknown]
  - Hepatic pain [Recovering/Resolving]
  - Abdominal pain [Unknown]
  - Hepatomegaly [Unknown]
